FAERS Safety Report 7364823-1 (Version None)
Quarter: 2011Q1

REPORT INFORMATION
  Report Type: 
  Country: None (occurrence: None)
  Receive Date: 20110321
  Receipt Date: 20110315
  Transmission Date: 20110831
  Serious: Yes (Hospitalization)
  Sender: FDA-Public Use
  Company Number: PHHO2011DE04765

PATIENT
  Sex: Female

DRUGS (3)
  1. MYFORTIC [Concomitant]
     Indication: RENAL TRANSPLANT
     Route: 048
  2. EVEROLIMUS [Suspect]
     Indication: RENAL TRANSPLANT
     Route: 048
  3. URBASON [Concomitant]
     Indication: IMMUNOSUPPRESSION
     Route: 048

REACTIONS (3)
  - NAUSEA [None]
  - VOMITING [None]
  - TRANSPLANT FAILURE [None]
